FAERS Safety Report 4867101-5 (Version None)
Quarter: 2005Q4

REPORT INFORMATION
  Report Type: 
  Country: None (occurrence: None)
  Receive Date: 20051222
  Receipt Date: 20051209
  Transmission Date: 20060501
  Serious: Yes (Death)
  Sender: FDA-Public Use
  Company Number: US200512001744

PATIENT
  Age: 40 Year
  Sex: Male
  Weight: 83.9 kg

DRUGS (1)
  1. ZYPREXA [Suspect]
     Indication: BIPOLAR DISORDER
     Dates: start: 19990930, end: 20030306

REACTIONS (1)
  - DIABETES MELLITUS NON-INSULIN-DEPENDENT [None]
